FAERS Safety Report 20135105 (Version 1)
Quarter: 2021Q4

REPORT INFORMATION
  Report Type: Spontaneous
  Country: US (occurrence: None)
  Receive Date: 20211201
  Receipt Date: 20211201
  Transmission Date: 20220303
  Serious: Yes (Death, Hospitalization)
  Sender: FDA-Public Use
  Company Number: None

PATIENT
  Sex: Male
  Weight: 97.9 kg

DRUGS (1)
  1. RITUXIMAB [Suspect]
     Active Substance: RITUXIMAB

REACTIONS (6)
  - Rhinovirus infection [None]
  - Respiratory failure [None]
  - Renal failure [None]
  - Thrombocytopenia [None]
  - Multiple organ dysfunction syndrome [None]
  - Haemofiltration [None]

NARRATIVE: CASE EVENT DATE: 20211015
